FAERS Safety Report 19686052 (Version 1)
Quarter: 2021Q3

REPORT INFORMATION
  Report Type: Spontaneous
  Country: US (occurrence: US)
  Receive Date: 20210811
  Receipt Date: 20210811
  Transmission Date: 20211014
  Serious: No
  Sender: FDA-Public Use
  Company Number: US-PERRIGO-20US013875

PATIENT
  Age: 59 Year
  Sex: Female
  Weight: 126.98 kg

DRUGS (5)
  1. LORATADINE. [Suspect]
     Active Substance: LORATADINE
     Indication: ARTHRITIS
     Dosage: 10 MG, QD
     Route: 048
     Dates: start: 20200908, end: 20200920
  2. LORATADINE. [Suspect]
     Active Substance: LORATADINE
     Indication: ARTHRALGIA
     Dosage: 10 MG, QD
     Route: 048
     Dates: end: 20200907
  3. LORATADINE. [Suspect]
     Active Substance: LORATADINE
     Indication: PERENNIAL ALLERGY
     Dosage: 10 MG, QD
     Route: 048
     Dates: start: 20200921
  4. NORCO [Concomitant]
     Active Substance: ACETAMINOPHEN\HYDROCODONE BITARTRATE
     Indication: ARTHRALGIA
     Dosage: UNKNOWN, UNKNOWN
     Route: 048
  5. NORCO [Concomitant]
     Active Substance: ACETAMINOPHEN\HYDROCODONE BITARTRATE
     Indication: PAIN IN EXTREMITY

REACTIONS (2)
  - Therapeutic product effect decreased [Unknown]
  - Drug effective for unapproved indication [Unknown]

NARRATIVE: CASE EVENT DATE: 20200908
